FAERS Safety Report 5709405-X (Version None)
Quarter: 2008Q2

REPORT INFORMATION
  Report Type: 
  Country: None (occurrence: None)
  Receive Date: 20080418
  Receipt Date: 20080417
  Transmission Date: 20081010
  Serious: Yes (Hospitalization)
  Sender: FDA-Public Use
  Company Number: US-BAYER-200712612BWH

PATIENT
  Age: 64 Year
  Sex: Female

DRUGS (14)
  1. NEXAVAR [Suspect]
     Indication: OVARIAN CANCER METASTATIC
     Dosage: TOTAL DAILY DOSE: 800 MG  UNIT DOSE: 200 MG
     Route: 048
     Dates: start: 20070401
  2. NEXAVAR [Suspect]
     Dosage: TOTAL DAILY DOSE: 200 MG  UNIT DOSE: 200 MG
     Route: 048
     Dates: end: 20070722
  3. GEMZAR [Suspect]
     Indication: OVARIAN CANCER METASTATIC
  4. ALLEGRA [Concomitant]
  5. LEVOXYL [Concomitant]
  6. PROTONIX [Concomitant]
  7. EFFEXOR [Concomitant]
  8. WELLBUTRIN [Concomitant]
  9. SINGULAIR [Concomitant]
  10. FOLIC ACID [Concomitant]
  11. DARVOCET [Concomitant]
  12. COMPAZINE [Concomitant]
  13. PERCOCET [Concomitant]
  14. AMITIZA [Concomitant]

REACTIONS (4)
  - COUGH [None]
  - DIARRHOEA [None]
  - PALMAR-PLANTAR ERYTHRODYSAESTHESIA SYNDROME [None]
  - PYREXIA [None]
